FAERS Safety Report 9920442 (Version 4)
Quarter: 2014Q2

REPORT INFORMATION
  Report Type: Report from Study
  Country: US (occurrence: US)
  Receive Date: 20140224
  Receipt Date: 20140507
  Transmission Date: 20141212
  Serious: Yes (Hospitalization)
  Sender: FDA-Public Use
  Company Number: US-ABBVIE-13P-163-1078065-00

PATIENT
  Age: 61 Year
  Sex: Female
  Weight: 99.88 kg

DRUGS (12)
  1. HUMIRA [Suspect]
     Indication: PSORIASIS
     Route: 058
     Dates: start: 20130313, end: 20130313
  2. HUMIRA [Suspect]
     Dates: start: 20130320, end: 20130320
  3. HUMIRA [Suspect]
     Dates: end: 201304
  4. TRICOR [Concomitant]
     Indication: PRODUCT USED FOR UNKNOWN INDICATION
  5. METFORMIN [Concomitant]
     Indication: DIABETES MELLITUS
  6. LITHIUM CARBONATE [Concomitant]
     Indication: PRODUCT USED FOR UNKNOWN INDICATION
  7. KLONOPIN [Concomitant]
     Indication: ANXIETY
     Dosage: 1 TABLET AT BEDTIME AS NEEDED
  8. SIMVASTATIN [Concomitant]
     Indication: PRODUCT USED FOR UNKNOWN INDICATION
  9. NOVOLOG [Concomitant]
     Indication: PRODUCT USED FOR UNKNOWN INDICATION
     Dosage: 45 UNITS IN THE AM, 45 UNITS IN THE PM
  10. CREAM [Concomitant]
     Indication: PSORIASIS
  11. BUPROPION [Concomitant]
     Indication: PRODUCT USED FOR UNKNOWN INDICATION
  12. BUPROPION [Concomitant]

REACTIONS (9)
  - Suicide attempt [Recovering/Resolving]
  - Suicidal ideation [Not Recovered/Not Resolved]
  - Blood glucose increased [Recovering/Resolving]
  - Tooth disorder [Unknown]
  - Fear [Unknown]
  - Psoriasis [Unknown]
  - Overweight [Unknown]
  - Mania [Unknown]
  - Anxiety [Unknown]
